FAERS Safety Report 19235920 (Version 1)
Quarter: 2021Q2

REPORT INFORMATION
  Report Type: Spontaneous
  Country: US (occurrence: US)
  Receive Date: 20210510
  Receipt Date: 20210510
  Transmission Date: 20210717
  Serious: No
  Sender: FDA-Public Use
  Company Number: US-TEVA-2021-US-1906659

PATIENT
  Age: 74 Year
  Sex: Male

DRUGS (3)
  1. NABUMETONE ACTAVIS [Suspect]
     Active Substance: NABUMETONE
     Indication: INFLAMMATION
     Route: 065
  2. BALSALAZIDE APOTEX [Concomitant]
     Indication: INFLAMMATION
     Route: 065
  3. TRAMADOL HYDROCHLORIDE TEVA [Concomitant]
     Active Substance: TRAMADOL HYDROCHLORIDE
     Indication: ARTHRALGIA
     Route: 065

REACTIONS (3)
  - Drug ineffective [Unknown]
  - Peripheral swelling [Recovered/Resolved]
  - Pain [Recovered/Resolved]
